FAERS Safety Report 8534747-2 (Version None)
Quarter: 2012Q3

REPORT INFORMATION
  Report Type: 
  Country: None (occurrence: None)
  Receive Date: 20120724
  Receipt Date: 20120719
  Transmission Date: 20120928
  Serious: Yes (Death)
  Sender: FDA-Public Use
  Company Number: IT-GLAXOSMITHKLINE-B0816431A

PATIENT
  Sex: Male

DRUGS (6)
  1. ALLOPURINOL [Concomitant]
  2. LEVOTHYROXINE SODIUM [Concomitant]
     Indication: HYPOTHYROIDISM
     Dosage: 30MCG PER DAY
     Route: 048
  3. ARIXTRA [Suspect]
     Indication: VENOUS THROMBOSIS
     Dosage: 7.5MG PER DAY
     Route: 058
     Dates: start: 20120602, end: 20120702
  4. RAMIPRIL [Concomitant]
     Dosage: 5MG PER DAY
     Route: 048
  5. LASIX [Concomitant]
     Indication: HYPERTENSION
     Route: 048
  6. SPIRIVA [Concomitant]

REACTIONS (2)
  - CONVULSION [None]
  - CEREBRAL HAEMORRHAGE [None]
